FAERS Safety Report 20281782 (Version 2)
Quarter: 2022Q1

REPORT INFORMATION
  Report Type: Report from Study
  Country: DE (occurrence: DE)
  Receive Date: 20220103
  Receipt Date: 20220120
  Transmission Date: 20220423
  Serious: Yes (Hospitalization)
  Sender: FDA-Public Use
  Company Number: DE-TEVA-2021-DE-1996656

PATIENT
  Sex: Male

DRUGS (13)
  1. CELECOXIB [Suspect]
     Active Substance: CELECOXIB
     Indication: Axial spondyloarthritis
     Route: 065
     Dates: start: 20160323
  2. ERELZI [Suspect]
     Active Substance: ETANERCEPT-SZZS
     Indication: Axial spondyloarthritis
     Route: 065
     Dates: start: 20200724, end: 20210128
  3. HYRIMOZ [Suspect]
     Active Substance: ADALIMUMAB-ADAZ
     Indication: Axial spondyloarthritis
     Route: 065
     Dates: start: 20210204
  4. BISOPROLOL [Concomitant]
     Active Substance: BISOPROLOL
  5. GABAPENTIN [Concomitant]
     Active Substance: GABAPENTIN
  6. TOREMIFENE [Concomitant]
     Active Substance: TOREMIFENE
  7. TILIDINE [Concomitant]
     Active Substance: TILIDINE
  8. VALPROATE SODIUM [Concomitant]
     Active Substance: VALPROATE SODIUM
  9. HYDROCHLOROTHIAZIDE [Concomitant]
     Active Substance: HYDROCHLOROTHIAZIDE
  10. RAMIPRIL [Concomitant]
     Active Substance: RAMIPRIL
  11. THEOPHYLLINE [Concomitant]
     Active Substance: THEOPHYLLINE
  12. METHIMAZOLE [Concomitant]
     Active Substance: METHIMAZOLE
  13. PREDNISOLONE [Concomitant]
     Active Substance: PREDNISOLONE

REACTIONS (5)
  - Hemiparesis [Not Recovered/Not Resolved]
  - Dysarthria [Not Recovered/Not Resolved]
  - Loss of proprioception [Not Recovered/Not Resolved]
  - Cerebrovascular accident [Not Recovered/Not Resolved]
  - Axial spondyloarthritis [Not Recovered/Not Resolved]

NARRATIVE: CASE EVENT DATE: 20210115
